FAERS Safety Report 24089701 (Version 1)
Quarter: 2024Q3

REPORT INFORMATION
  Report Type: Spontaneous
  Country: US (occurrence: US)
  Receive Date: 20240715
  Receipt Date: 20240715
  Transmission Date: 20241016
  Serious: No
  Sender: BIOCON
  Company Number: US-BIOCON BIOLOGICS LIMITED-2022M1092882

PATIENT
  Sex: Male

DRUGS (2)
  1. FULPHILA [Suspect]
     Active Substance: PEGFILGRASTIM-JMDB
     Indication: Non-Hodgkin^s lymphoma
     Dosage: UNK
     Route: 065
  2. DEVICE [Suspect]
     Active Substance: DEVICE
     Indication: Non-Hodgkin^s lymphoma

REACTIONS (3)
  - Device breakage [Unknown]
  - Device leakage [Unknown]
  - Product quality issue [Unknown]
